FAERS Safety Report 9439942 (Version 2)
Quarter: 2013Q3

REPORT INFORMATION
  Report Type: Spontaneous
  Country: US (occurrence: US)
  Receive Date: 20130805
  Receipt Date: 20130828
  Transmission Date: 20140515
  Serious: Yes (Hospitalization, Other)
  Sender: FDA-Public Use
  Company Number: US-009507513-1307USA016248

PATIENT
  Age: 25 Year
  Sex: Female
  Weight: 108.84 kg

DRUGS (2)
  1. IMPLANON [Suspect]
     Indication: CONTRACEPTION
     Dosage: 1 ROD UP TO 3 YEARS
     Route: 030
     Dates: start: 20100831, end: 20130625
  2. GLYBURIDE [Concomitant]
     Dosage: 5 MG, BID

REACTIONS (8)
  - General anaesthesia [Recovered/Resolved]
  - Surgery [Recovered/Resolved]
  - Weight increased [Recovering/Resolving]
  - Medical device complication [Recovered/Resolved]
  - Device deployment issue [Recovered/Resolved]
  - Incorrect route of drug administration [Unknown]
  - Device dislocation [Recovered/Resolved]
  - Complication of device removal [Recovered/Resolved]
